FAERS Safety Report 7709254-7 (Version None)
Quarter: 2011Q3

REPORT INFORMATION
  Report Type: 
  Country: None (occurrence: None)
  Receive Date: 20110825
  Receipt Date: 20110823
  Transmission Date: 20111222
  Serious: Yes (Other)
  Sender: FDA-Public Use
  Company Number: US-PFIZER INC-2011195632

PATIENT
  Sex: Female
  Weight: 53.51 kg

DRUGS (6)
  1. LISINOPRIL [Suspect]
     Indication: HYPERTENSION
     Dosage: UNK
     Dates: start: 20060101, end: 20060101
  2. DIAZEPAM [Concomitant]
     Dosage: 0.05 MG, UNK
  3. LEVOTHYROXINE [Concomitant]
     Indication: THYROID DISORDER
     Dosage: 100 UG, UNK
  4. ZOLOFT [Suspect]
     Indication: ANXIETY
     Dosage: UNK
  5. HYDROCHLOROTHIAZIDE [Concomitant]
     Indication: HYPERTENSION
     Dosage: 12.5 MG, UNK
  6. ZOLOFT [Suspect]
     Indication: STRESS

REACTIONS (6)
  - GLAUCOMA [None]
  - SWELLING FACE [None]
  - SWOLLEN TONGUE [None]
  - DYSPNOEA [None]
  - HYPERTENSION [None]
  - PHARYNGEAL OEDEMA [None]
